FAERS Safety Report 7070009-0 (Version None)
Quarter: 2010Q4

REPORT INFORMATION
  Report Type: 
  Country: None (occurrence: None)
  Receive Date: 20101028
  Receipt Date: 20100809
  Transmission Date: 20110411
  Serious: No
  Sender: FDA-Public Use
  Company Number: US-WYE-H16801810

PATIENT
  Sex: Male
  Weight: 74.46 kg

DRUGS (9)
  1. ADVIL [Suspect]
     Indication: TOOTHACHE
     Dosage: 2 TABLETS EVERY 4 HOURS, FOR TOTAL OF 8 TABLETS PER DAY
     Route: 048
     Dates: start: 20100715
  2. ADVIL [Suspect]
     Indication: BACK PAIN
  3. DIOVAN [Concomitant]
  4. BUMETANIDE [Concomitant]
  5. FLOMAX [Concomitant]
  6. LIPITOR [Concomitant]
  7. GABAPENTIN [Concomitant]
  8. ACETYLSALICYLIC ACID [Concomitant]
  9. TOPROL-XL [Concomitant]

REACTIONS (2)
  - CONTUSION [None]
  - OVERDOSE [None]
